FAERS Safety Report 22029477 (Version 1)
Quarter: 2023Q1

REPORT INFORMATION
  Report Type: Spontaneous
  Country: US (occurrence: None)
  Receive Date: 20230221
  Receipt Date: 20230221
  Transmission Date: 20230418
  Serious: Yes (Hospitalization)
  Sender: FDA-Public Use
  Company Number: None

PATIENT
  Age: 50 Year
  Sex: Female
  Weight: 81 kg

DRUGS (2)
  1. LEVOCARNITINE\SEMAGLUTIDE [Suspect]
     Active Substance: LEVOCARNITINE\SEMAGLUTIDE
     Indication: Weight control
     Dosage: OTHER QUANTITY : 1 INJECTION(S);?OTHER FREQUENCY : ONCE A WEEK;?
     Route: 058
     Dates: start: 20230113, end: 20230120
  2. BUPROPION [Concomitant]
     Active Substance: BUPROPION

REACTIONS (10)
  - Brain natriuretic peptide increased [None]
  - Fibrin D dimer increased [None]
  - Red blood cell sedimentation rate increased [None]
  - C-reactive protein increased [None]
  - Chest pain [None]
  - Dyspnoea exertional [None]
  - Rash [None]
  - Joint stiffness [None]
  - Arthralgia [None]
  - Blood fibrinogen increased [None]

NARRATIVE: CASE EVENT DATE: 20230120
